FAERS Safety Report 4388268-1 (Version None)
Quarter: 2004Q2

REPORT INFORMATION
  Report Type: 
  Country: None (occurrence: None)
  Receive Date: 20040630
  Receipt Date: 20040630
  Transmission Date: 20050107
  Serious: Yes (Hospitalization)
  Sender: FDA-Public Use
  Company Number: None

PATIENT
  Age: 75 Year
  Sex: Female

DRUGS (6)
  1. SIMVASTATIN [Suspect]
     Indication: HYPERLIPIDAEMIA
     Dosage: 80 MG PO DAILY
     Route: 048
  2. AMIODARONE HCL [Concomitant]
  3. WARFARIN SODIUM [Concomitant]
  4. LOTREL [Concomitant]
  5. TOPROL-XL [Concomitant]
  6. TYLENOL [Concomitant]

REACTIONS (3)
  - CHROMATURIA [None]
  - FALL [None]
  - RHABDOMYOLYSIS [None]
